FAERS Safety Report 14386118 (Version 4)
Quarter: 2021Q4

REPORT INFORMATION
  Report Type: Report from Study
  Country: US (occurrence: US)
  Receive Date: 20180115
  Receipt Date: 20211117
  Transmission Date: 20220303
  Serious: Yes (Other)
  Sender: FDA-Public Use
  Company Number: US-TAKEDA-2018TUS000849

PATIENT
  Sex: Male

DRUGS (1)
  1. VEDOLIZUMAB [Suspect]
     Active Substance: VEDOLIZUMAB
     Indication: Crohn^s disease
     Dosage: 300 MILLIGRAM
     Route: 042
     Dates: start: 2014

REACTIONS (5)
  - Intestinal obstruction [Recovered/Resolved]
  - Gastrointestinal scarring [Unknown]
  - Abdominal adhesions [Unknown]
  - Immunodeficiency [Unknown]
  - Dehydration [Unknown]

NARRATIVE: CASE EVENT DATE: 20150101
